FAERS Safety Report 6093947-4 (Version None)
Quarter: 2009Q1

REPORT INFORMATION
  Report Type: 
  Country: None (occurrence: None)
  Receive Date: 20090224
  Receipt Date: 20090224
  Transmission Date: 20090719
  Serious: Yes (Hospitalization)
  Sender: FDA-Public Use
  Company Number: None

PATIENT
  Age: 72 Year
  Sex: Female
  Weight: 100 kg

DRUGS (4)
  1. ERLOTINIB 150MG [Suspect]
     Indication: NON-SMALL CELL LUNG CANCER
     Dosage: 150MG QD
     Dates: start: 20081124, end: 20081207
  2. FLUCONAZOLE [Concomitant]
  3. PRAVASTATRIN [Concomitant]
  4. ATENOLOL [Concomitant]

REACTIONS (15)
  - CHAPPED LIPS [None]
  - CONJUNCTIVAL IRRITATION [None]
  - CONJUNCTIVITIS [None]
  - DEHYDRATION [None]
  - ELECTROLYTE IMBALANCE [None]
  - ERYTHEMA [None]
  - FUNGAL INFECTION [None]
  - GROIN INFECTION [None]
  - HYPOPHAGIA [None]
  - LIP EXFOLIATION [None]
  - ORAL PAIN [None]
  - RASH [None]
  - SCAB [None]
  - STAPHYLOCOCCAL IMPETIGO [None]
  - VULVOVAGINAL DISCOMFORT [None]
